FAERS Safety Report 6934559-7 (Version None)
Quarter: 2010Q3

REPORT INFORMATION
  Report Type: 
  Country: None (occurrence: None)
  Receive Date: 20100820
  Receipt Date: 20100811
  Transmission Date: 20110219
  Serious: Yes (Hospitalization)
  Sender: FDA-Public Use
  Company Number: SE-AMGEN-QUU426990

PATIENT
  Sex: Female

DRUGS (3)
  1. ENBREL [Suspect]
     Indication: JUVENILE ARTHRITIS
     Dosage: UNKNOWN DOSE
     Dates: start: 20061214
  2. NSAID'S [Concomitant]
     Dosage: UNKNOWN
     Dates: start: 20091203
  3. ORUDIS - SLOW RELEASE [Concomitant]

REACTIONS (1)
  - ORGANISING PNEUMONIA [None]
